FAERS Safety Report 9254807 (Version 1)
Quarter: 2013Q2

REPORT INFORMATION
  Report Type: Spontaneous
  Country: US (occurrence: None)
  Receive Date: 20130425
  Receipt Date: 20130425
  Transmission Date: 20140414
  Serious: Yes (Hospitalization)
  Sender: FDA-Public Use
  Company Number: None

PATIENT
  Age: 70 Year
  Sex: Female
  Weight: 95 kg

DRUGS (11)
  1. WARFARIN [Suspect]
     Indication: ANTICOAGULANT THERAPY
     Dosage: 2.5 MG  DAILY  PO?PRIOR TO ADMISSION
     Route: 048
  2. WARFARIN [Suspect]
     Indication: ATRIAL FIBRILLATION
     Dosage: 2.5 MG  DAILY  PO?PRIOR TO ADMISSION
     Route: 048
  3. AMIODARONE [Concomitant]
  4. ASPIRIN [Concomitant]
  5. METOPROLOL [Concomitant]
  6. FUROSEMIDE [Concomitant]
  7. FOLIC ACID [Concomitant]
  8. RANITIDINE [Concomitant]
  9. CHOLECALCIFEROL [Concomitant]
  10. FERROUS SULFATE [Concomitant]
  11. ACETAMINOPHEN [Concomitant]

REACTIONS (3)
  - Haematuria [None]
  - International normalised ratio increased [None]
  - Treatment noncompliance [None]
